FAERS Safety Report 7215399-0 (Version None)
Quarter: 2011Q1

REPORT INFORMATION
  Report Type: 
  Country: None (occurrence: None)
  Receive Date: 20110107
  Receipt Date: 20101230
  Transmission Date: 20110831
  Serious: Yes (Death)
  Sender: FDA-Public Use
  Company Number: US-JNJFOC-20100906887

PATIENT
  Sex: Female
  Weight: 65.32 kg

DRUGS (8)
  1. CELEBREX [Suspect]
     Indication: PRODUCT USED FOR UNKNOWN INDICATION
  2. REMICADE [Suspect]
     Route: 042
  3. VITAMIN B-12 [Concomitant]
  4. REMICADE [Suspect]
     Indication: RHEUMATOID ARTHRITIS
     Route: 042
  5. FOSAMAX [Concomitant]
  6. TENORMIN [Concomitant]
  7. REMICADE [Suspect]
     Route: 042
  8. CALCIUM WITH VITAMIN D [Concomitant]

REACTIONS (3)
  - ADVERSE DRUG REACTION [None]
  - MYOCARDIAL INFARCTION [None]
  - RASH PRURITIC [None]
